FAERS Safety Report 5573700-8 (Version None)
Quarter: 2007Q4

REPORT INFORMATION
  Report Type: 
  Country: None (occurrence: None)
  Receive Date: 20071220
  Receipt Date: 20071212
  Transmission Date: 20080405
  Serious: Yes (Hospitalization, Disabling, Other)
  Sender: FDA-Public Use
  Company Number: 2002-09-0653

PATIENT
  Age: 42 Year
  Sex: Female
  Weight: 65.7716 kg

DRUGS (29)
  1. PEG-INTRON [Suspect]
     Indication: HEPATITIS C
     Dosage: 96 MCG;QW;SC
     Route: 058
     Dates: start: 20020301, end: 20020614
  2. REBETOL [Suspect]
     Indication: HEPATITIS C
     Dosage: 800 MG;QD;PO
     Route: 048
     Dates: start: 20020301, end: 20020614
  3. NORCO [Concomitant]
  4. FOLIC ACID [Concomitant]
  5. CELEXA [Concomitant]
  6. DALMANE [Concomitant]
  7. ZOLOFT [Concomitant]
  8. NORFLEX [Concomitant]
  9. CEPHALEXIN [Concomitant]
  10. NEURONTIN [Concomitant]
  11. PREDNISONE [Concomitant]
  12. CYCLOBENZAPRINE HCL [Concomitant]
  13. REMERON [Concomitant]
  14. PROMETHAZINE [Concomitant]
  15. FUROSEMIDE [Concomitant]
  16. VIOXX [Concomitant]
  17. AMITRIPTYLINE HCL [Concomitant]
  18. SONATA [Concomitant]
  19. ZYPREXA [Concomitant]
  20. EFFEXOR XR [Concomitant]
  21. TRIMOX (SULFAMETHOXAZOLE/THIMETHOPRIM) [Concomitant]
  22. TRAMADOL HCL [Concomitant]
  23. TRAZODONE HCL [Concomitant]
  24. LYRICA [Concomitant]
  25. FENTANYL [Concomitant]
  26. NORTRIPTYLINE HCL [Concomitant]
  27. ANAPROX [Concomitant]
  28. HYDROCODONE BITARTRATE [Concomitant]
  29. ARTHROTEC [Concomitant]

REACTIONS (82)
  - ABSCESS [None]
  - ACNE [None]
  - ACTIVITIES OF DAILY LIVING IMPAIRED [None]
  - ALOPECIA [None]
  - AMNESIA [None]
  - ANXIETY [None]
  - ARTHRALGIA [None]
  - ASTHENIA [None]
  - AUTOIMMUNE DISORDER [None]
  - BALANCE DISORDER [None]
  - BREAST MASS [None]
  - BURSA DISORDER [None]
  - CEREBRAL INFARCTION [None]
  - CHEST PAIN [None]
  - COGNITIVE DISORDER [None]
  - CONFUSIONAL STATE [None]
  - CONNECTIVE TISSUE DISORDER [None]
  - DEAFNESS [None]
  - DEHYDRATION [None]
  - DEPRESSION [None]
  - DIARRHOEA [None]
  - DIPLOPIA [None]
  - DRUG INEFFECTIVE [None]
  - DRY MOUTH [None]
  - DYSPEPSIA [None]
  - DYSPHAGIA [None]
  - DYSPNOEA [None]
  - DYSSTASIA [None]
  - EAR PAIN [None]
  - FALL [None]
  - GAIT DISTURBANCE [None]
  - HAEMANGIOMA [None]
  - HAEMOPTYSIS [None]
  - HEADACHE [None]
  - INFARCTION [None]
  - INFLAMMATION [None]
  - INFLUENZA LIKE ILLNESS [None]
  - INJURY [None]
  - INSOMNIA [None]
  - INTERMITTENT CLAUDICATION [None]
  - INTERVERTEBRAL DISC PROTRUSION [None]
  - JOINT CREPITATION [None]
  - JOINT SWELLING [None]
  - MEMORY IMPAIRMENT [None]
  - MUSCLE INJURY [None]
  - MUSCLE SPASMS [None]
  - MUSCLE STRAIN [None]
  - MUSCLE TWITCHING [None]
  - MUSCULOSKELETAL DISORDER [None]
  - MYALGIA [None]
  - MYOSITIS [None]
  - NERVE COMPRESSION [None]
  - NERVE INJURY [None]
  - NEURALGIA [None]
  - NIGHT SWEATS [None]
  - OEDEMA [None]
  - OSTEOARTHRITIS [None]
  - OTORRHOEA [None]
  - PAIN [None]
  - PAIN IN EXTREMITY [None]
  - PALPITATIONS [None]
  - PANCYTOPENIA [None]
  - PARAESTHESIA [None]
  - PHARYNGOLARYNGEAL PAIN [None]
  - POLYNEUROPATHY [None]
  - POOR QUALITY SLEEP [None]
  - RAYNAUD'S PHENOMENON [None]
  - SCIATICA [None]
  - SINUSITIS [None]
  - SKIN DISORDER [None]
  - STAPHYLOCOCCAL INFECTION [None]
  - STOMACH DISCOMFORT [None]
  - SWOLLEN TONGUE [None]
  - SYSTEMIC LUPUS ERYTHEMATOSUS [None]
  - TENDON DISORDER [None]
  - TENDON RUPTURE [None]
  - TENDONITIS [None]
  - THIRST [None]
  - TONGUE DRY [None]
  - VASCULITIS [None]
  - VERTIGO [None]
  - VISION BLURRED [None]
